FAERS Safety Report 8303617-7 (Version None)
Quarter: 2012Q2

REPORT INFORMATION
  Report Type: 
  Country: None (occurrence: None)
  Receive Date: 20120423
  Receipt Date: 20120417
  Transmission Date: 20120825
  Serious: No
  Sender: FDA-Public Use
  Company Number: US-B.I. PHARMACEUTICALS,INC./RIDGEFIELD-2012-BP-07246BP

PATIENT
  Sex: Male

DRUGS (2)
  1. OXYGEN [Concomitant]
  2. COMBIVENT [Suspect]
     Route: 055

REACTIONS (2)
  - FEAR [None]
  - DYSPNOEA [None]
